FAERS Safety Report 7400589-4 (Version None)
Quarter: 2011Q2

REPORT INFORMATION
  Report Type: 
  Country: None (occurrence: None)
  Receive Date: 20110407
  Receipt Date: 20110331
  Transmission Date: 20111010
  Serious: Yes (Other)
  Sender: FDA-Public Use
  Company Number: JP-PFIZER INC-2011075080

PATIENT
  Age: 15 Year
  Sex: Male

DRUGS (2)
  1. DOXORUBICIN HCL [Suspect]
     Indication: SYNOVIAL SARCOMA
     Dosage: 100 MG, MONTHLY
  2. CISPLATIN [Suspect]
     Indication: SYNOVIAL SARCOMA
     Dosage: 20 MG, 3X/WEEK

REACTIONS (6)
  - HYPOMAGNESAEMIA [None]
  - BLOOD CREATINE PHOSPHOKINASE INCREASED [None]
  - TETANY [None]
  - PANCYTOPENIA [None]
  - METABOLIC ALKALOSIS [None]
  - HYPOCALCAEMIA [None]
